FAERS Safety Report 21205376 (Version 1)
Quarter: 2022Q3

REPORT INFORMATION
  Report Type: Spontaneous
  Country: DE (occurrence: DE)
  Receive Date: 20220812
  Receipt Date: 20220812
  Transmission Date: 20221026
  Serious: Yes (Other)
  Sender: FDA-Public Use
  Company Number: DE-TEVA-2022-DE-2062077

PATIENT
  Sex: Female

DRUGS (10)
  1. VALSARTAN [Suspect]
     Active Substance: VALSARTAN
     Indication: Hypertension
     Dosage: 240 MILLIGRAM DAILY; ONE WHOLE TABLET IN THE MORNING AT A DOSAGE OF 160 MG AND HALF A TABLET IN THE
     Route: 048
     Dates: start: 20150918, end: 20180130
  2. Doxepin-Neurax [Concomitant]
     Indication: Product used for unknown indication
     Route: 065
  3. ARCOXIA [Concomitant]
     Active Substance: ETORICOXIB
     Indication: Product used for unknown indication
     Route: 065
  4. Tavor [Concomitant]
     Indication: Product used for unknown indication
     Dosage: 1
     Route: 065
  5. PROMETHAZINE HYDROCHLORIDE [Concomitant]
     Active Substance: PROMETHAZINE HYDROCHLORIDE
     Indication: Product used for unknown indication
     Route: 065
  6. Trimipramin-Neurax [Concomitant]
     Indication: Product used for unknown indication
     Route: 065
  7. Venlafaxin-Neurax [Concomitant]
     Indication: Product used for unknown indication
     Route: 065
  8. Tianeura [Concomitant]
     Indication: Product used for unknown indication
     Route: 065
  9. Panotile Ciprom [Concomitant]
     Indication: Product used for unknown indication
     Route: 065
  10. Ibuflam 600 mg Lichtenstein [Concomitant]
     Indication: Product used for unknown indication
     Route: 065

REACTIONS (16)
  - Sleep disorder [Unknown]
  - Insomnia [Unknown]
  - Mental disorder [Unknown]
  - Fear of disease [Unknown]
  - Exposure to toxic agent [Unknown]
  - Quality of life decreased [Unknown]
  - Headache [Unknown]
  - Hyperventilation [Unknown]
  - Palpitations [Unknown]
  - Nausea [Unknown]
  - Anxiety [Unknown]
  - Chest pain [Unknown]
  - Restlessness [Unknown]
  - Gastrointestinal disorder [Unknown]
  - Product contamination [Unknown]
  - Physical disability [Unknown]
